FAERS Safety Report 4971772-2 (Version None)
Quarter: 2006Q2

REPORT INFORMATION
  Report Type: 
  Country: None (occurrence: None)
  Receive Date: 20060413
  Receipt Date: 20051125
  Transmission Date: 20061013
  Serious: Yes (Hospitalization)
  Sender: FDA-Public Use
  Company Number: HQWYE733229NOV05

PATIENT
  Sex: Female

DRUGS (9)
  1. ENBREL [Suspect]
     Indication: RHEUMATOID ARTHRITIS
     Route: 058
     Dates: start: 20050616, end: 20051025
  2. ENBREL [Suspect]
     Route: 065
     Dates: start: 20060120, end: 20060120
  3. ENBREL [Suspect]
     Route: 065
     Dates: start: 20060210, end: 20060210
  4. ENBREL [Suspect]
     Route: 065
     Dates: start: 20060217, end: 20060217
  5. ENBREL [Suspect]
     Route: 065
     Dates: start: 20060224, end: 20060224
  6. RHEUMATREX [Suspect]
     Indication: RHEUMATOID ARTHRITIS
     Dosage: UNKNOWN DOSAGE
     Route: 048
     Dates: start: 20050204, end: 20051101
  7. BUCILLAMINE [Concomitant]
     Indication: RHEUMATOID ARTHRITIS
     Dosage: UNKNOWN
     Route: 048
     Dates: start: 20041227, end: 20051101
  8. REBAMIPIDE [Concomitant]
     Route: 048
     Dates: start: 20041227, end: 20051111
  9. FOLIAMIN [Concomitant]
     Route: 065

REACTIONS (3)
  - ALANINE AMINOTRANSFERASE INCREASED [None]
  - ASPARTATE AMINOTRANSFERASE INCREASED [None]
  - HEPATIC FUNCTION ABNORMAL [None]
